FAERS Safety Report 19040736 (Version 1)
Quarter: 2021Q1

REPORT INFORMATION
  Report Type: Report from Study
  Country: AO (occurrence: AO)
  Receive Date: 20210322
  Receipt Date: 20210322
  Transmission Date: 20210420
  Serious: Yes (Other)
  Sender: FDA-Public Use
  Company Number: AO-BRISTOL-MYERS SQUIBB COMPANY-BMS-2021-025421

PATIENT

DRUGS (1)
  1. HYDROXYUREA. [Suspect]
     Active Substance: HYDROXYUREA
     Indication: SICKLE CELL ANAEMIA
     Dosage: STABLE DOSE
     Route: 065

REACTIONS (1)
  - Cerebrovascular accident [Unknown]
